FAERS Safety Report 25368353 (Version 1)
Quarter: 2025Q2

REPORT INFORMATION
  Report Type: Spontaneous
  Country: DE (occurrence: DE)
  Receive Date: 20250528
  Receipt Date: 20250528
  Transmission Date: 20250716
  Serious: Yes (Other)
  Sender: AMICUS THERAPEUTICS
  Company Number: DE-AMICUS THERAPEUTICS, INC.-AMI_4040

PATIENT
  Sex: Female

DRUGS (1)
  1. GALAFOLD [Suspect]
     Active Substance: MIGALASTAT HYDROCHLORIDE
     Indication: Fabry^s disease
     Route: 048
     Dates: start: 2023

REACTIONS (4)
  - Pneumonia [Recovered/Resolved]
  - Depression [Recovered/Resolved]
  - Vitamin D deficiency [Not Recovered/Not Resolved]
  - Product dose omission in error [Recovered/Resolved]

NARRATIVE: CASE EVENT DATE: 20240101
